FAERS Safety Report 22284644 (Version 3)
Quarter: 2023Q4

REPORT INFORMATION
  Report Type: Report from Study
  Country: FR (occurrence: FR)
  Receive Date: 20230504
  Receipt Date: 20231218
  Transmission Date: 20240110
  Serious: Yes (Other)
  Sender: FDA-Public Use
  Company Number: FR-SA-SAC20230501001764

PATIENT
  Age: 74 Year
  Sex: Male
  Weight: 77 kg

DRUGS (7)
  1. ISATUXIMAB [Suspect]
     Active Substance: ISATUXIMAB
     Indication: Plasma cell myeloma refractory
     Dosage: 680 MG
     Dates: start: 20220224, end: 20220224
  2. ISATUXIMAB [Suspect]
     Active Substance: ISATUXIMAB
     Dosage: 720 MG
     Dates: start: 20230919, end: 20230919
  3. POMALIDOMIDE [Suspect]
     Active Substance: POMALIDOMIDE
     Indication: Plasma cell myeloma refractory
     Dosage: 300 MG
     Dates: start: 20220224, end: 20220224
  4. POMALIDOMIDE [Suspect]
     Active Substance: POMALIDOMIDE
     Dosage: 3 MG
     Route: 065
     Dates: start: 20231009, end: 20231009
  5. CARFILZOMIB [Suspect]
     Active Substance: CARFILZOMIB
     Indication: Plasma cell myeloma refractory
     Dosage: 36 MG
     Dates: start: 20220224, end: 20220224
  6. CARFILZOMIB [Suspect]
     Active Substance: CARFILZOMIB
     Dosage: 62 MG
     Dates: start: 20230919, end: 20230919
  7. DEXAMETHASONE [Concomitant]
     Active Substance: DEXAMETHASONE
     Indication: Plasma cell myeloma refractory
     Dosage: 40 MG
     Dates: start: 20220224, end: 20220224

REACTIONS (3)
  - Hypotension [Recovered/Resolved]
  - Hypertension [Recovered/Resolved with Sequelae]
  - Hypertension [Recovered/Resolved]

NARRATIVE: CASE EVENT DATE: 20220224
